FAERS Safety Report 4989964-5 (Version None)
Quarter: 2006Q2

REPORT INFORMATION
  Report Type: 
  Country: None (occurrence: None)
  Receive Date: 20060503
  Receipt Date: 20060424
  Transmission Date: 20061013
  Serious: Yes (Hospitalization)
  Sender: FDA-Public Use
  Company Number: ES-JNJFOC-20060405841

PATIENT
  Age: 2 Year
  Sex: Female

DRUGS (2)
  1. ACETAMINOPHEN [Suspect]
  2. ACETAMINOPHEN [Suspect]
     Indication: DRUG USE FOR UNKNOWN INDICATION
     Dosage: 465 MG/KG DOSE

REACTIONS (4)
  - ACCIDENTAL DRUG INTAKE BY CHILD [None]
  - COMA [None]
  - LOSS OF CONSCIOUSNESS [None]
  - OVERDOSE [None]
